FAERS Safety Report 4385573-X (Version None)
Quarter: 2004Q2

REPORT INFORMATION
  Report Type: 
  Country: None (occurrence: None)
  Receive Date: 20040625
  Receipt Date: 20040610
  Transmission Date: 20050107
  Serious: Yes (Life-Threatening, Hospitalization)
  Sender: FDA-Public Use
  Company Number: 20040600319

PATIENT
  Age: 63 Year
  Sex: Male

DRUGS (1)
  1. PHENERGAN [Suspect]
     Indication: POST PROCEDURAL NAUSEA
     Dates: start: 20040413

REACTIONS (14)
  - ASPIRATION [None]
  - CHOKING [None]
  - COMA [None]
  - DEPRESSION [None]
  - DEVICE FAILURE [None]
  - DRUG HYPERSENSITIVITY [None]
  - DYSPHAGIA [None]
  - HOARSENESS [None]
  - HYPOAESTHESIA [None]
  - HYPOAESTHESIA ORAL [None]
  - PHARYNGEAL HYPOAESTHESIA [None]
  - POST PROCEDURAL COMPLICATION [None]
  - TOOTH DISORDER [None]
  - TOOTH INJURY [None]
